FAERS Safety Report 5366996-9 (Version None)
Quarter: 2007Q2

REPORT INFORMATION
  Report Type: 
  Country: None (occurrence: None)
  Receive Date: 20070622
  Receipt Date: 20070614
  Transmission Date: 20071010
  Serious: Yes (Hospitalization, Other)
  Sender: FDA-Public Use
  Company Number: US-GENENTECH-240803

PATIENT
  Sex: Female
  Weight: 72.562 kg

DRUGS (22)
  1. AVASTIN [Suspect]
     Indication: OVARIAN NEOPLASM
     Dosage: 15 MG/KG, Q3W
     Dates: start: 20050701
  2. AVASTIN [Suspect]
     Dosage: 10 MG/KG, Q2W
     Dates: start: 20051101
  3. AVASTIN [Suspect]
     Dosage: 10 MG/KG, SINGLE
     Dates: start: 20060201
  4. AVASTIN [Suspect]
     Dosage: 10 MG/KG, Q2W
     Dates: start: 20060301
  5. GEMCITABINE [Concomitant]
     Indication: DRUG USE FOR UNKNOWN INDICATION
     Dates: start: 20060301
  6. CISPLATIN [Concomitant]
     Indication: DRUG USE FOR UNKNOWN INDICATION
     Dates: start: 20060301
  7. TARKA [Concomitant]
     Indication: DRUG USE FOR UNKNOWN INDICATION
     Dosage: UNK, BID
  8. MICARDIS [Concomitant]
     Indication: DRUG USE FOR UNKNOWN INDICATION
     Dosage: 80 MG, BID
  9. CLONIDINE [Concomitant]
     Indication: DRUG USE FOR UNKNOWN INDICATION
     Dosage: 0.01 MG, QAM
  10. CLONIDINE [Concomitant]
     Dosage: 0.02 MG, QPM
  11. ZOLOFT [Concomitant]
     Indication: DRUG USE FOR UNKNOWN INDICATION
     Dosage: 25 MG, QD
  12. PREDNISONE TAB [Concomitant]
     Indication: DRUG USE FOR UNKNOWN INDICATION
     Dosage: 20 MG, BID
  13. FOLIC ACID [Concomitant]
     Indication: DRUG USE FOR UNKNOWN INDICATION
     Dosage: 1 MG, BID
  14. LEVOXYL [Concomitant]
     Indication: DRUG USE FOR UNKNOWN INDICATION
     Dosage: 100 A?G, QD
  15. WARFARIN SODIUM [Concomitant]
     Indication: DRUG USE FOR UNKNOWN INDICATION
     Dosage: 7.5 MG, QD
  16. LASIX [Concomitant]
     Indication: DRUG USE FOR UNKNOWN INDICATION
     Dosage: 60 MG, UNK
  17. ZOFRAN [Concomitant]
     Indication: NAUSEA
     Dosage: 8 MG, PRN
  18. TEMAZEPAM [Concomitant]
     Indication: DRUG USE FOR UNKNOWN INDICATION
     Dosage: 15 MG, PRN
  19. MIDRIN [Concomitant]
     Indication: HEADACHE
     Dosage: UNK, PRN
  20. TYLENOL [Concomitant]
     Indication: HEADACHE
     Dosage: UNK, PRN
  21. MULTI-VITAMIN [Concomitant]
     Indication: DRUG USE FOR UNKNOWN INDICATION
     Dosage: UNK, PRN
  22. FIORINAL [Concomitant]
     Indication: MIGRAINE
     Dosage: UNK, PRN

REACTIONS (4)
  - OEDEMA [None]
  - PLEURAL EFFUSION [None]
  - PORTAL VEIN PRESSURE INCREASED [None]
  - SPLENOMEGALY [None]
